FAERS Safety Report 8457422-1 (Version None)
Quarter: 2012Q2

REPORT INFORMATION
  Report Type: 
  Country: None (occurrence: None)
  Receive Date: 20120621
  Receipt Date: 20120618
  Transmission Date: 20120825
  Serious: Yes (Hospitalization, Other)
  Sender: FDA-Public Use
  Company Number: JP-TEVA-336269USA

PATIENT
  Sex: Male

DRUGS (7)
  1. PIOGLITAZONE [Concomitant]
     Indication: TYPE 2 DIABETES MELLITUS
     Dates: start: 20120412
  2. MAGNESIUM OXIDE [Concomitant]
  3. TREANDA [Suspect]
     Indication: LYMPHOPLASMACYTOID LYMPHOMA/IMMUNOCYTOMA
     Route: 042
     Dates: start: 20120416
  4. SULFAMETHOXAZOLE AND TRIMETHOPRIM [Suspect]
     Indication: INFECTION PROPHYLAXIS
     Dates: start: 20120413, end: 20120423
  5. ALLOPURINOL [Concomitant]
  6. VALACICLOVIR [Suspect]
     Indication: INFECTION PROPHYLAXIS
     Route: 048
     Dates: start: 20120413, end: 20120423
  7. RITUXIMAB [Concomitant]
     Dates: start: 20120416, end: 20120416

REACTIONS (1)
  - LIVER DISORDER [None]
